FAERS Safety Report 8353176-8 (Version None)
Quarter: 2012Q2

REPORT INFORMATION
  Report Type: 
  Country: None (occurrence: None)
  Receive Date: 20120511
  Receipt Date: 20120503
  Transmission Date: 20120825
  Serious: Yes (Hospitalization, Disabling, Other)
  Sender: FDA-Public Use
  Company Number: US-ASTRAZENECA-2012SE02860

PATIENT
  Age: 82 Year
  Sex: Female

DRUGS (17)
  1. BENADRYL [Concomitant]
     Indication: HYPERSENSITIVITY
     Dosage: 25 MG, 2 AS NEEDED
  2. LOPID [Concomitant]
     Route: 048
  3. LASIX [Concomitant]
     Route: 048
  4. PHENERGAN [Concomitant]
     Indication: NAUSEA
     Dosage: 25 MG EVERY 6 HURS AS NEEDED
  5. NEXIUM [Suspect]
     Route: 048
  6. NEXIUM [Suspect]
     Route: 048
  7. ZOLOFT [Concomitant]
     Route: 048
  8. METOPROLOL TARTRATE [Concomitant]
     Route: 048
  9. GAMFIBROZIL [Concomitant]
     Route: 048
  10. ULORIC [Concomitant]
  11. KEFLEX [Concomitant]
     Route: 048
  12. COLACE [Concomitant]
     Route: 048
  13. ASPIRIN [Concomitant]
     Route: 048
  14. FOLIC ACID [Concomitant]
  15. BIDIL [Concomitant]
     Dosage: TID
     Route: 048
  16. AMIODARONE HCL [Concomitant]
     Route: 048
  17. MIRALAX [Concomitant]

REACTIONS (27)
  - DYSPHAGIA [None]
  - FOLATE DEFICIENCY [None]
  - OESOPHAGEAL HYPOMOTILITY [None]
  - MOBILITY DECREASED [None]
  - MUSCULAR WEAKNESS [None]
  - VENTRICULAR TACHYCARDIA [None]
  - CONSTIPATION [None]
  - OESOPHAGEAL STENOSIS [None]
  - RENAL FAILURE ACUTE [None]
  - EJECTION FRACTION DECREASED [None]
  - PANCYTOPENIA [None]
  - HYPERTENSION [None]
  - GASTROOESOPHAGEAL REFLUX DISEASE [None]
  - WHEEZING [None]
  - OESOPHAGEAL DISORDER [None]
  - LUNG NEOPLASM MALIGNANT [None]
  - ASTHENIA [None]
  - GOUT [None]
  - PROCTALGIA [None]
  - ATRIAL FIBRILLATION [None]
  - NEUROPATHY PERIPHERAL [None]
  - CARDIAC FAILURE CONGESTIVE [None]
  - BREAST CANCER [None]
  - ASTHMA [None]
  - HAEMORRHOIDS [None]
  - PAIN IN EXTREMITY [None]
  - MALAISE [None]
